FAERS Safety Report 9572690 (Version 1)
Quarter: 2013Q4

REPORT INFORMATION
  Report Type: Spontaneous
  Country: US (occurrence: US)
  Receive Date: 20131001
  Receipt Date: 20131001
  Transmission Date: 20140711
  Serious: Yes (Other)
  Sender: FDA-Public Use
  Company Number: 2013SP002717

PATIENT
  Age: 40 Year
  Sex: Female

DRUGS (1)
  1. ALVESCO INHALATION AEROSOL [Suspect]
     Indication: PRODUCT USED FOR UNKNOWN INDICATION
     Route: 055
     Dates: start: 2011

REACTIONS (1)
  - Cardiac flutter [Unknown]
